FAERS Safety Report 14534910 (Version 2)
Quarter: 2018Q2

REPORT INFORMATION
  Report Type: Spontaneous
  Country: GB (occurrence: GB)
  Receive Date: 20180215
  Receipt Date: 20180426
  Transmission Date: 20180711
  Serious: Yes (Hospitalization)
  Sender: FDA-Public Use
  Company Number: GB-AUROBINDO-AUR-APL-2018-006845

PATIENT
  Age: 34 Year
  Sex: Female

DRUGS (3)
  1. METFORMIN TABLET [Suspect]
     Active Substance: METFORMIN HYDROCHLORIDE
     Indication: PRODUCT USED FOR UNKNOWN INDICATION
     Dosage: UNK
     Route: 065
  2. NAPROXEN. [Suspect]
     Active Substance: NAPROXEN
     Indication: FIBROMYALGIA
     Dosage: UNK
     Route: 065
  3. NAPROXEN. [Suspect]
     Active Substance: NAPROXEN
     Dosage: ()
     Route: 065

REACTIONS (6)
  - Malaise [Not Recovered/Not Resolved]
  - Wrong drug administered [Unknown]
  - Nausea [Unknown]
  - Product packaging issue [Unknown]
  - Vomiting [Unknown]
  - Drug dispensing error [Unknown]
